FAERS Safety Report 4415689-0 (Version None)
Quarter: 2004Q2

REPORT INFORMATION
  Report Type: 
  Country: None (occurrence: None)
  Receive Date: 20040628
  Receipt Date: 20040211
  Transmission Date: 20050107
  Serious: Yes (Hospitalization)
  Sender: FDA-Public Use
  Company Number: 358840

PATIENT
  Age: 86 Year
  Sex: Female

DRUGS (3)
  1. CELLCEPT [Suspect]
     Dosage: ORAL
     Route: 048
     Dates: end: 20040115
  2. PREDNISONE [Concomitant]
  3. LOPRESSOR [Concomitant]

REACTIONS (5)
  - BRADYCARDIA [None]
  - DUODENAL ULCER [None]
  - GASTROINTESTINAL HAEMORRHAGE [None]
  - HAEMATEMESIS [None]
  - MALLORY-WEISS SYNDROME [None]
